FAERS Safety Report 4964636-1 (Version None)
Quarter: 2006Q2

REPORT INFORMATION
  Report Type: 
  Country: None (occurrence: None)
  Receive Date: 20060406
  Receipt Date: 20051025
  Transmission Date: 20061013
  Serious: Yes (Hospitalization)
  Sender: FDA-Public Use
  Company Number: US-MERCK-0510USA09182

PATIENT
  Age: 54 Year
  Sex: Female

DRUGS (1)
  1. VIOXX [Suspect]
     Route: 048
     Dates: start: 20000601, end: 20040930

REACTIONS (34)
  - ABDOMINAL PAIN LOWER [None]
  - ACUTE PRERENAL FAILURE [None]
  - ANAEMIA [None]
  - ARTHRALGIA [None]
  - ATELECTASIS [None]
  - BRONCHITIS ACUTE [None]
  - CEREBROVASCULAR ACCIDENT [None]
  - CHRONIC OBSTRUCTIVE PULMONARY DISEASE [None]
  - COLON ADENOMA [None]
  - CONSTIPATION [None]
  - DEHYDRATION [None]
  - ESSENTIAL HYPERTENSION [None]
  - GASTROENTERITIS [None]
  - GASTROOESOPHAGEAL REFLUX DISEASE [None]
  - GROIN PAIN [None]
  - HAEMOPTYSIS [None]
  - HEPATITIS B [None]
  - HIATUS HERNIA [None]
  - HYPERLIPIDAEMIA [None]
  - HYPERTENSION [None]
  - HYPOMAGNESAEMIA [None]
  - ILEUS [None]
  - LUMBAR RADICULOPATHY [None]
  - NON-CARDIAC CHEST PAIN [None]
  - OCCULT BLOOD POSITIVE [None]
  - ORTHOSTATIC HYPOTENSION [None]
  - OSTEOARTHRITIS [None]
  - PELVIC PERITONEAL ADHESIONS [None]
  - PLEURISY [None]
  - PNEUMONIA [None]
  - RECTAL HAEMORRHAGE [None]
  - SALPINGITIS [None]
  - SPINAL DISORDER [None]
  - THROMBOSIS [None]
